FAERS Safety Report 7736647-4 (Version None)
Quarter: 2011Q3

REPORT INFORMATION
  Report Type: 
  Country: None (occurrence: None)
  Receive Date: 20110902
  Receipt Date: 20110822
  Transmission Date: 20111222
  Serious: Yes (Death, Hospitalization)
  Sender: FDA-Public Use
  Company Number: 2011MA012358

PATIENT
  Age: 63 Year
  Sex: Male

DRUGS (4)
  1. RIFAMPIN [Suspect]
     Dosage: 450 MG;
  2. ETHAMBUTOL HYDROCHLORIDE [Suspect]
     Dosage: 750 MG;
     Dates: start: 20050218, end: 20050519
  3. ISONIAZID [Suspect]
     Dosage: 0.4 GRAM;
     Dates: start: 20050218, end: 20050519
  4. PYRAZIMAM IDE ( PYRAZINAMIDE) [Suspect]
     Dosage: 1.5 GRAM;
     Dates: start: 20050218, end: 20050513

REACTIONS (6)
  - ACUTE HEPATIC FAILURE [None]
  - DECREASED APPETITE [None]
  - GAIT DISTURBANCE [None]
  - RASH [None]
  - HEPATITIS FULMINANT [None]
  - FATIGUE [None]
